FAERS Safety Report 9743590 (Version 2)
Quarter: 2013Q4

REPORT INFORMATION
  Report Type: Spontaneous
  Country: US (occurrence: US)
  Receive Date: 20131210
  Receipt Date: 20131212
  Transmission Date: 20140711
  Serious: Yes (Other)
  Sender: FDA-Public Use
  Company Number: US-TEVA-383078USA

PATIENT
  Age: 31 Year
  Sex: Female
  Weight: 56.3 kg

DRUGS (3)
  1. PARAGARD 380A [Suspect]
     Indication: CONTRACEPTION
     Route: 015
     Dates: start: 20130124, end: 20130125
  2. SYNTHROID [Concomitant]
     Indication: HYPOTHYROIDISM
  3. SPIRONOLACTONE [Concomitant]
     Indication: ACNE

REACTIONS (2)
  - Device dislocation [Recovered/Resolved]
  - Metrorrhagia [Recovered/Resolved]
